FAERS Safety Report 11652893 (Version 5)
Quarter: 2015Q4

REPORT INFORMATION
  Report Type: Spontaneous
  Country: DE (occurrence: DE)
  Receive Date: 20151022
  Receipt Date: 20151211
  Transmission Date: 20160304
  Serious: Yes (Other)
  Sender: FDA-Public Use
  Company Number: PHHY2015DE134754

PATIENT
  Sex: Female

DRUGS (1)
  1. VOLTAREN RESINAT [Suspect]
     Active Substance: DICLOFENAC
     Indication: HEADACHE
     Dosage: 75 MG, PRN
     Route: 065

REACTIONS (7)
  - Circulatory collapse [Recovered/Resolved]
  - Nausea [Recovered/Resolved]
  - Dizziness [Recovered/Resolved]
  - Anaphylactic shock [Recovered/Resolved]
  - Urticaria [Recovered/Resolved]
  - Blood pressure decreased [Unknown]
  - Pruritus generalised [Recovered/Resolved]

NARRATIVE: CASE EVENT DATE: 2015
